FAERS Safety Report 8594922-8 (Version None)
Quarter: 2012Q3

REPORT INFORMATION
  Report Type: 
  Country: None (occurrence: None)
  Receive Date: 20120815
  Receipt Date: 20120808
  Transmission Date: 20120928
  Serious: Yes (Hospitalization, Other)
  Sender: FDA-Public Use
  Company Number: NZ-B.I. PHARMACEUTICALS,INC./RIDGEFIELD-2012-AU-01398AU

PATIENT
  Sex: Male

DRUGS (8)
  1. TERAZOSIN HYDROCHLORIDE [Concomitant]
  2. ALLOPURINOL [Concomitant]
  3. FLUTICASONE PROPIONATE [Concomitant]
     Route: 055
  4. OXYBUTYNIN CHLORIDE [Concomitant]
  5. PRADAXA [Suspect]
     Indication: ATRIAL FIBRILLATION
     Dosage: 220 MG
  6. AMITRIPTYLINE HCL [Concomitant]
  7. OMEPRAZOLE [Concomitant]
  8. LOSARTAN POTASSIUM [Concomitant]

REACTIONS (2)
  - CEREBROVASCULAR ACCIDENT [None]
  - COORDINATION ABNORMAL [None]
